FAERS Safety Report 8003395-5 (Version None)
Quarter: 2011Q4

REPORT INFORMATION
  Report Type: 
  Country: None (occurrence: None)
  Receive Date: 20111222
  Receipt Date: 20111219
  Transmission Date: 20120403
  Serious: Yes (Other)
  Sender: FDA-Public Use
  Company Number: US-US-EMD SERONO, INC.-7068665

PATIENT
  Sex: Female

DRUGS (4)
  1. REBIF [Suspect]
     Indication: PRODUCT USED FOR UNKNOWN INDICATION
     Route: 058
     Dates: start: 20091207, end: 20110501
  2. ANALGESIC [Concomitant]
     Indication: PREMEDICATION
     Dosage: MEDICATING PRIOR TO BEDTIME
  3. COPAXONE [Concomitant]
     Dates: start: 20090601
  4. REBIF [Suspect]
     Route: 058
     Dates: start: 20111219

REACTIONS (2)
  - INJECTION SITE REACTION [None]
  - HERPES ZOSTER [None]
